FAERS Safety Report 4577967-4 (Version None)
Quarter: 2005Q1

REPORT INFORMATION
  Report Type: 
  Country: None (occurrence: None)
  Receive Date: 20050209
  Receipt Date: 20050128
  Transmission Date: 20050727
  Serious: Yes (Life-Threatening, Hospitalization)
  Sender: FDA-Public Use
  Company Number: 2005023442

PATIENT
  Age: 66 Year
  Sex: Female

DRUGS (2)
  1. CARDURA XL [Suspect]
     Dosage: 4 MG ORAL
     Route: 048
  2. CANDESARTAN (CANDESARTAN) [Concomitant]

REACTIONS (6)
  - ADENOCARCINOMA [None]
  - GASTROINTESTINAL OBSTRUCTION [None]
  - HYPOTENSION [None]
  - MALAISE [None]
  - STENT PLACEMENT [None]
  - VOMITING [None]
